FAERS Safety Report 5107529-1 (Version None)
Quarter: 2006Q3

REPORT INFORMATION
  Report Type: 
  Country: None (occurrence: None)
  Receive Date: 20060913
  Receipt Date: 20060913
  Transmission Date: 20061208
  Serious: Yes (Life-Threatening, Hospitalization)
  Sender: FDA-Public Use
  Company Number: None

PATIENT
  Age: 59 Year
  Sex: Male
  Weight: 99.7913 kg

DRUGS (2)
  1. DEXAMETHASONE TAB [Suspect]
     Indication: BACK PAIN
     Dosage: 24 MG DAILY PO
     Route: 048
     Dates: start: 20060629, end: 20060715
  2. DEXAMETHASONE TAB [Suspect]
     Indication: INTERVERTEBRAL DISC PROTRUSION
     Dosage: 24 MG DAILY PO
     Route: 048
     Dates: start: 20060629, end: 20060715

REACTIONS (9)
  - CATARACT [None]
  - CHEST PAIN [None]
  - CONDITION AGGRAVATED [None]
  - DEEP VEIN THROMBOSIS [None]
  - HYPERSOMNIA [None]
  - INSOMNIA [None]
  - PULMONARY EMBOLISM [None]
  - SOMNOLENCE [None]
  - SPEECH DISORDER [None]
